FAERS Safety Report 12211011 (Version 1)
Quarter: 2016Q1

REPORT INFORMATION
  Report Type: Spontaneous
  Country: GB (occurrence: GB)
  Receive Date: 20160325
  Receipt Date: 20160325
  Transmission Date: 20160526
  Serious: Yes (Other)
  Sender: FDA-Public Use
  Company Number: GB-PFIZER INC-2016161800

PATIENT
  Age: 75 Year
  Sex: Male
  Weight: 78 kg

DRUGS (6)
  1. DOXAZOSIN MESILATE [Suspect]
     Active Substance: DOXAZOSIN MESYLATE
     Dosage: UNK
     Dates: start: 20151105
  2. BENDROFLUMETHIAZIDE [Concomitant]
     Active Substance: BENDROFLUMETHIAZIDE
     Dosage: 1 DF, EACH MORNING
     Dates: start: 20150619
  3. SIMVASTATIN. [Concomitant]
     Active Substance: SIMVASTATIN
     Dosage: 1 DF DAILY AT NIGHT
     Dates: start: 20150115
  4. LEVEMIR [Concomitant]
     Active Substance: INSULIN DETEMIR
     Dosage: 14 IU DAILY (6 UNITS MORNING, 8 UNITS EVENING)
     Dates: start: 20140826
  5. RAMIPRIL. [Concomitant]
     Active Substance: RAMIPRIL
     Dosage: 1 DF, DAILY
     Dates: start: 20140829
  6. HUMALOG [Concomitant]
     Active Substance: INSULIN LISPRO
     Dosage: UNK, VARIABLE WITH MEALS
     Dates: start: 20151204

REACTIONS (1)
  - Genital rash [Recovering/Resolving]

NARRATIVE: CASE EVENT DATE: 20160304
